FAERS Safety Report 13593371 (Version 2)
Quarter: 2017Q3

REPORT INFORMATION
  Report Type: Spontaneous
  Country: US (occurrence: US)
  Receive Date: 20170530
  Receipt Date: 20170725
  Transmission Date: 20171127
  Serious: Yes (Life-Threatening, Hospitalization, Other)
  Sender: FDA-Public Use
  Company Number: US-AUROBINDO-AUR-APL-2017-34395

PATIENT
  Age: 45 Year
  Sex: Female

DRUGS (1)
  1. METFORMIN [Suspect]
     Active Substance: METFORMIN HYDROCHLORIDE
     Indication: TYPE 2 DIABETES MELLITUS
     Route: 065

REACTIONS (13)
  - Leukopenia [Recovered/Resolved]
  - Vitamin B12 deficiency [Recovering/Resolving]
  - Pancytopenia [Recovering/Resolving]
  - Pernicious anaemia [Recovered/Resolved]
  - Presyncope [Recovered/Resolved]
  - Paraesthesia [Recovered/Resolved]
  - Dizziness [Recovered/Resolved]
  - Conjunctival pallor [Recovered/Resolved]
  - Atrophic glossitis [Recovered/Resolved]
  - Night sweats [Recovered/Resolved]
  - Thrombocytopenia [Recovered/Resolved]
  - Pain in extremity [Recovered/Resolved]
  - Autoimmune haemolytic anaemia [Recovering/Resolving]
